FAERS Safety Report 20019292 (Version 1)
Quarter: 2021Q4

REPORT INFORMATION
  Report Type: Spontaneous
  Country: US (occurrence: US)
  Receive Date: 20211101
  Receipt Date: 20211101
  Transmission Date: 20220304
  Serious: Yes (Death, Other)
  Sender: FDA-Public Use
  Company Number: US-SA-SAC20211029000723

PATIENT

DRUGS (1)
  1. ZANTAC [Suspect]
     Active Substance: RANITIDINE HYDROCHLORIDE
     Dates: start: 2004, end: 2015

REACTIONS (3)
  - Oesophageal carcinoma [Fatal]
  - Throat cancer [Fatal]
  - Nasal cavity cancer [Fatal]

NARRATIVE: CASE EVENT DATE: 20170601
